FAERS Safety Report 4602280-6 (Version None)
Quarter: 2005Q2

REPORT INFORMATION
  Report Type: 
  Country: None (occurrence: None)
  Receive Date: 20050215
  Receipt Date: 20041101
  Transmission Date: 20051028
  Serious: Yes (Other)
  Sender: FDA-Public Use
  Company Number: 381764

PATIENT
  Age: 54 Year
  Sex: Male
  Weight: 69.9 kg

DRUGS (5)
  1. PEGASYS [Suspect]
     Dosage: SUBCUTANEOUS
     Route: 058
     Dates: start: 20040114, end: 20040915
  2. COPEGUS [Suspect]
     Dosage: ORAL
     Route: 048
     Dates: end: 20040915
  3. DOXEPIN HCL [Concomitant]
  4. VASOTEC [Concomitant]
  5. VICODIN [Concomitant]

REACTIONS (5)
  - CONJUNCTIVITIS [None]
  - CORNEAL ULCER [None]
  - EYE DISORDER [None]
  - INGROWN HAIR [None]
  - VISUAL ACUITY REDUCED [None]
